FAERS Safety Report 21099294 (Version 2)
Quarter: 2022Q3

REPORT INFORMATION
  Report Type: Report from Study
  Country: CA (occurrence: None)
  Receive Date: 20220719
  Receipt Date: 20220721
  Transmission Date: 20221027
  Serious: Yes (Hospitalization)
  Sender: FDA-Public Use
  Company Number: CA-ROCHE-3140564

PATIENT
  Age: 73 Year
  Sex: Female

DRUGS (8)
  1. VEMURAFENIB [Suspect]
     Active Substance: VEMURAFENIB
     Indication: Non-small cell lung cancer
     Route: 048
     Dates: start: 20220315, end: 20220606
  2. COBIMETINIB [Suspect]
     Active Substance: COBIMETINIB
     Indication: Non-small cell lung cancer
     Route: 048
     Dates: start: 20220315, end: 20220531
  3. POTASSIUM PHOSPHATE [Concomitant]
     Active Substance: POTASSIUM PHOSPHATE
     Dates: start: 20220617
  4. ENOXAPARIN [Concomitant]
     Active Substance: ENOXAPARIN
  5. LEVETIRACETAM [Concomitant]
     Active Substance: LEVETIRACETAM
  6. AMLODIPINE [Concomitant]
     Active Substance: AMLODIPINE BESYLATE
  7. HYDRALAZINE [Concomitant]
     Active Substance: HYDRALAZINE HYDROCHLORIDE
  8. PIPERACILLIN AND TAZOBACTAM [Concomitant]
     Active Substance: PIPERACILLIN SODIUM\TAZOBACTAM SODIUM

REACTIONS (1)
  - Posterior reversible encephalopathy syndrome [Unknown]

NARRATIVE: CASE EVENT DATE: 20220617
